FAERS Safety Report 9663639 (Version 1)
Quarter: 2013Q4

REPORT INFORMATION
  Report Type: Spontaneous
  Country: US (occurrence: US)
  Receive Date: 20131101
  Receipt Date: 20131101
  Transmission Date: 20140711
  Serious: No
  Sender: FDA-Public Use
  Company Number: US-ENDO PHARMACEUTICALS INC.-CLOZ20110002

PATIENT
  Sex: Male

DRUGS (2)
  1. CLONAZEPAM 1MG [Suspect]
     Indication: ANXIETY
     Dosage: 1 MG
     Route: 048
  2. XENAZINE [Suspect]
     Indication: HUNTINGTON^S DISEASE
     Route: 048

REACTIONS (3)
  - Amnesia [Recovered/Resolved]
  - Insomnia [Recovered/Resolved]
  - Restlessness [Not Recovered/Not Resolved]
